FAERS Safety Report 16582962 (Version 3)
Quarter: 2019Q3

REPORT INFORMATION
  Report Type: Report from Study
  Country: US (occurrence: US)
  Receive Date: 20190717
  Receipt Date: 20190822
  Transmission Date: 20191004
  Serious: Yes (Hospitalization)
  Sender: FDA-Public Use
  Company Number: US-ROCHE-2352623

PATIENT
  Age: 72 Year
  Sex: Male
  Weight: 79 kg

DRUGS (26)
  1. VINCRISTINE [Suspect]
     Active Substance: VINCRISTINE
     Indication: DIFFUSE LARGE B-CELL LYMPHOMA
     Dosage: DATE OF MOST RECENT DOSE OF VINCRISTINE PRIOR TO SAE ONSET: 27/JUN/2019 , FORM STRENGTH: 1 MG/ML?DOS
     Route: 042
     Dates: start: 20190522
  2. RITUXIMAB. [Suspect]
     Active Substance: RITUXIMAB
     Indication: DIFFUSE LARGE B-CELL LYMPHOMA
     Dosage: DATE OF MOST RECENT DOSE OF RITUXIMAB PRIOR TO BOTH SAE ONSET: 27/JUN/2019 (770 MG)
     Route: 042
     Dates: start: 20190522
  3. PREDNISONE. [Suspect]
     Active Substance: PREDNISONE
     Indication: DIFFUSE LARGE B-CELL LYMPHOMA
     Dosage: DATE OF MOST RECENT DOSE OF PREDNISONE PRIOR TO BOTH SAE ONSET: 01/JUL/2019 (100 MG)?ON DAYS 1-5 OF
     Route: 048
     Dates: start: 20190522
  4. ALLOPURINOL. [Concomitant]
     Active Substance: ALLOPURINOL
     Dosage: TUMOR LYSIS SYNDROME PROPHYLAXIS
     Route: 048
     Dates: start: 20190515
  5. ONDANSETRON [Concomitant]
     Active Substance: ONDANSETRON
     Indication: NAUSEA
     Route: 048
     Dates: start: 20190603
  6. PROCHLORPERAZINE MALEATE. [Concomitant]
     Active Substance: PROCHLORPERAZINE MALEATE
     Indication: NAUSEA
     Route: 048
     Dates: start: 20190516
  7. ESOMEPRAZOLE. [Concomitant]
     Active Substance: ESOMEPRAZOLE MAGNESIUM
     Dosage: HEARTBURN PREVENTION
     Route: 048
     Dates: start: 2009
  8. PLACEBO [Suspect]
     Active Substance: UNSPECIFIED INGREDIENT
     Indication: DIFFUSE LARGE B-CELL LYMPHOMA
     Dosage: DATE OF MOST RECENT DOSE PRIOR TO SAE ONSET: 27/JUN/2019
     Route: 042
     Dates: start: 20190522
  9. CYCLOPHOSPHAMIDE. [Suspect]
     Active Substance: CYCLOPHOSPHAMIDE
     Indication: DIFFUSE LARGE B-CELL LYMPHOMA
     Dosage: DATE OF MOST RECENT DOSE OF CYCLOPHOSPHAMIDE PRIOR TO BOTH  SAE ONSET: 27/JUN/2019 (1540 MG)
     Route: 042
     Dates: start: 20190522
  10. GARLIC [ALLIUM SATIVUM] [Concomitant]
     Active Substance: GARLIC
     Dosage: SUPPLEMENT
     Route: 048
     Dates: start: 2009
  11. LISINOPRIL. [Concomitant]
     Active Substance: LISINOPRIL
     Indication: HYPERTENSION
     Route: 048
     Dates: start: 1998
  12. VITAMIN B12 [Concomitant]
     Active Substance: CYANOCOBALAMIN
     Dosage: SUPPLEMENT
     Route: 048
     Dates: start: 2009
  13. VITAMIN D3 [Concomitant]
     Active Substance: CHOLECALCIFEROL
     Dosage: SUPPLEMENT?400 UNIT
     Route: 048
     Dates: start: 2009
  14. DEXAMETHASONE SODIUM PHOSPHATE. [Concomitant]
     Active Substance: DEXAMETHASONE SODIUM PHOSPHATE
     Dosage: PREMEDICATION FOR CHEMOTHERAPY
     Route: 042
     Dates: start: 20190522
  15. ACYCLOVIR [ACICLOVIR] [Concomitant]
     Active Substance: ACYCLOVIR
     Dosage: VIRAL INFECTION PROPHYLAXIS
     Route: 048
     Dates: start: 20190522
  16. OXYCODONE HYDROCHLORIDE. [Concomitant]
     Active Substance: OXYCODONE HYDROCHLORIDE
     Indication: PAIN
     Route: 048
     Dates: start: 20190522
  17. DIPHENHYDRAMINE HCL [Concomitant]
     Active Substance: DIPHENHYDRAMINE HYDROCHLORIDE
     Dosage: PREMEDICATION FOR CHEMOTHERAPY
     Route: 042
     Dates: start: 20190522
  18. LEVOTHYROXINE SODIUM. [Concomitant]
     Active Substance: LEVOTHYROXINE SODIUM
     Indication: HYPOTHYROIDISM
     Route: 048
     Dates: start: 2017
  19. PEGFILGRASTIM [Concomitant]
     Active Substance: PEGFILGRASTIM
     Dosage: G-CSF PROPHYLAXIS
     Route: 058
     Dates: start: 20190522
  20. RED YEAST RICE [Concomitant]
     Active Substance: DIETARY SUPPLEMENT
     Dosage: CO Q-10 RED YEAST RICE?SUPPLEMENT
     Route: 048
     Dates: start: 2009
  21. ACETAMINOPHEN. [Concomitant]
     Active Substance: ACETAMINOPHEN
     Dosage: PREMEDICATION FOR CHEMOTHERAPY
     Route: 048
     Dates: start: 20190522
  22. DOXORUBICIN [Suspect]
     Active Substance: DOXORUBICIN
     Indication: DIFFUSE LARGE B-CELL LYMPHOMA
     Dosage: DATE OF MOST RECENT DOSE OF DOXORUBICIN PRIOR TO BOTH SAE ONSET: 27/JUN/2019 (103 MG)
     Route: 042
     Dates: start: 20190522
  23. LIDOCAINE;PRILOCAINE [Concomitant]
     Dosage: PORT ACCESS PROPHYLAXIS?1 OTHER
     Route: 061
     Dates: start: 20190516
  24. CITALOPRAM [Concomitant]
     Active Substance: CITALOPRAM HYDROBROMIDE
     Indication: DISTURBANCE IN ATTENTION
     Route: 048
     Dates: start: 2009
  25. CINVANTI [Concomitant]
     Active Substance: APREPITANT
     Dosage: PREMEDICATION FOR CHEMOTHERAPY
     Route: 042
     Dates: start: 20190522
  26. PALONOSETRON HCL [Concomitant]
     Active Substance: PALONOSETRON HYDROCHLORIDE
     Dosage: PREMEDICATION FOR CHEMOTHERAPY
     Route: 042
     Dates: start: 20190522

REACTIONS (2)
  - Febrile neutropenia [Recovered/Resolved]
  - Pneumonia [Recovered/Resolved]

NARRATIVE: CASE EVENT DATE: 20190705
